FAERS Safety Report 10173352 (Version 1)
Quarter: 2014Q2

REPORT INFORMATION
  Report Type: Spontaneous
  Country: IT (occurrence: IT)
  Receive Date: 20140515
  Receipt Date: 20140515
  Transmission Date: 20141212
  Serious: Yes (Other)
  Sender: FDA-Public Use
  Company Number: IT-TEVA-479924ISR

PATIENT
  Age: 48 Year
  Sex: Male
  Weight: 104 kg

DRUGS (11)
  1. GEMCITABINE [Suspect]
     Indication: PANCREATIC CARCINOMA
     Route: 042
     Dates: start: 20130822, end: 20140203
  2. DECADRON - FARMACEUTICI CABER S.P.A. [Suspect]
     Indication: PREMEDICATION
     Route: 042
     Dates: start: 20130822, end: 20140203
  3. ZANTAC - GLAXOSMITHKLINE S.P.A. [Suspect]
     Indication: PREMEDICATION
     Route: 042
     Dates: start: 20130822, end: 20140203
  4. CREON [Concomitant]
     Indication: PRODUCT USED FOR UNKNOWN INDICATION
  5. PANTORC [Concomitant]
     Indication: PRODUCT USED FOR UNKNOWN INDICATION
  6. NOVORAPID [Concomitant]
     Indication: PRODUCT USED FOR UNKNOWN INDICATION
  7. LEVEMIR [Concomitant]
     Indication: PRODUCT USED FOR UNKNOWN INDICATION
  8. CRESTOR [Concomitant]
     Indication: PRODUCT USED FOR UNKNOWN INDICATION
  9. PLAVIX [Concomitant]
     Indication: PRODUCT USED FOR UNKNOWN INDICATION
  10. ZOPRANOL [Concomitant]
     Indication: PRODUCT USED FOR UNKNOWN INDICATION
  11. EFIENT [Concomitant]
     Indication: PRODUCT USED FOR UNKNOWN INDICATION

REACTIONS (5)
  - Dizziness [Recovered/Resolved]
  - Generalised tonic-clonic seizure [Recovered/Resolved]
  - Loss of consciousness [Recovered/Resolved]
  - Nausea [Recovered/Resolved]
  - Headache [Unknown]
